FAERS Safety Report 7785385-0 (Version None)
Quarter: 2011Q3

REPORT INFORMATION
  Report Type: 
  Country: None (occurrence: None)
  Receive Date: 20110929
  Receipt Date: 20110922
  Transmission Date: 20111222
  Serious: Yes (Life-Threatening, Hospitalization)
  Sender: FDA-Public Use
  Company Number: NL-GENZYME-CLOF-1001798

PATIENT
  Sex: Male

DRUGS (1)
  1. EVOLTRA [Suspect]
     Indication: ACUTE LEUKAEMIA
     Dosage: INDUCTION I
     Route: 065

REACTIONS (1)
  - VENTRICULAR FIBRILLATION [None]
